FAERS Safety Report 12109267 (Version 4)
Quarter: 2016Q2

REPORT INFORMATION
  Report Type: Spontaneous
  Country: US (occurrence: US)
  Receive Date: 20160224
  Receipt Date: 20160629
  Transmission Date: 20160815
  Serious: Yes (Other)
  Sender: FDA-Public Use
  Company Number: US-PFIZER INC-2016094817

PATIENT
  Age: 73 Year
  Sex: Male

DRUGS (10)
  1. NAPROXEN. [Concomitant]
     Active Substance: NAPROXEN
     Dosage: UNK
  2. VIAGRA [Concomitant]
     Active Substance: SILDENAFIL CITRATE
     Dosage: UNK
  3. LYRICA [Suspect]
     Active Substance: PREGABALIN
     Indication: NEURALGIA
     Dosage: UNK
     Dates: start: 2012
  4. LYRICA [Suspect]
     Active Substance: PREGABALIN
     Indication: TRIGEMINAL NEURALGIA
     Dosage: 50 MG, 2X/DAY
  5. CYCLOBENZAPRINE [Concomitant]
     Active Substance: CYCLOBENZAPRINE
     Indication: MUSCLE SPASMS
     Dosage: 10 MG, QD  AS NEEDED
     Route: 048
     Dates: start: 2013
  6. AMBIEN [Concomitant]
     Active Substance: ZOLPIDEM TARTRATE
     Indication: INSOMNIA
     Dosage: 10 MG, QD AS NEEDED
     Route: 048
     Dates: start: 2011
  7. LYRICA [Suspect]
     Active Substance: PREGABALIN
     Indication: PARALYSIS
     Dosage: 50 MG, 2X/DAY
     Route: 048
  8. GLUCOSAMINE [Concomitant]
     Active Substance: GLUCOSAMINE
     Dosage: UNK
  9. VIT B COMPLEX [Concomitant]
     Dosage: UNK
  10. LYRICA [Suspect]
     Active Substance: PREGABALIN
     Indication: NEURALGIA
     Dosage: 50 MG, AS MANY AS EIGHT FOR AWHILE, SOMETIMES TAKE MORE THAN TWO AT A TIME WHEN TAKING IT THREE TIME

REACTIONS (8)
  - Neuralgia [Unknown]
  - Vision blurred [Recovering/Resolving]
  - Drug dose omission [Unknown]
  - Facial spasm [Unknown]
  - Facial paralysis [Unknown]
  - Condition aggravated [Unknown]
  - Corneal reflex decreased [Unknown]
  - Dry eye [Unknown]

NARRATIVE: CASE EVENT DATE: 2007
